FAERS Safety Report 14139415 (Version 2)
Quarter: 2017Q4

REPORT INFORMATION
  Report Type: Report from Study
  Country: JP (occurrence: JP)
  Receive Date: 20171028
  Receipt Date: 20171204
  Transmission Date: 20180321
  Serious: Yes (Hospitalization, Other)
  Sender: FDA-Public Use
  Company Number: JP-UCBSA-2016047473

PATIENT
  Age: 13 Year
  Sex: Female
  Weight: 56 kg

DRUGS (22)
  1. MYSTAN [Concomitant]
     Active Substance: CLOBAZAM
     Indication: PARTIAL SEIZURES WITH SECONDARY GENERALISATION
     Dosage: 10 MG DAILY
     Route: 048
     Dates: start: 20140204, end: 20161015
  2. MIDAZOLAM [Concomitant]
     Active Substance: MIDAZOLAM HYDROCHLORIDE
     Indication: PRODUCT USED FOR UNKNOWN INDICATION
     Dosage: UNK
  3. THIOPENTAL [Concomitant]
     Active Substance: THIOPENTAL
     Indication: PRODUCT USED FOR UNKNOWN INDICATION
  4. LEVETIRACETAM. [Suspect]
     Active Substance: LEVETIRACETAM
     Dosage: 500 MG, 2X/DAY (BID)
     Route: 048
     Dates: start: 20171004
  5. TEGRETOL [Concomitant]
     Active Substance: CARBAMAZEPINE
     Dosage: 200 MG DAILY
     Route: 048
     Dates: start: 20171003
  6. POTASSIUM BROMIDE [Concomitant]
     Active Substance: POTASSIUM BROMIDE
     Indication: PARTIAL SEIZURES WITH SECONDARY GENERALISATION
     Dosage: 800 MG DAILY
     Route: 048
     Dates: end: 20160309
  7. SODIUM BENZOATE [Concomitant]
     Active Substance: SODIUM BENZOATE
     Indication: SOMNOLENCE
     Dosage: UNK
     Dates: start: 20170808
  8. LEVETIRACETAM. [Suspect]
     Active Substance: LEVETIRACETAM
     Dosage: 500 MG, 2X/DAY (BID)
     Route: 048
     Dates: start: 20151104, end: 20170214
  9. INVEGA [Concomitant]
     Active Substance: PALIPERIDONE
     Indication: PSYCHIATRIC SYMPTOM
     Dosage: 3 MG DAILY
     Route: 048
     Dates: start: 20151202, end: 20170808
  10. LEVETIRACETAM. [Suspect]
     Active Substance: LEVETIRACETAM
     Dosage: 750 MG, 2X/DAY (BID)
     Route: 048
     Dates: start: 20170215, end: 20171003
  11. AMEZINIUM METILSULFATE [Concomitant]
     Active Substance: AMEZINIUM METILSULFATE
     Indication: ORTHOSTATIC INTOLERANCE
     Dosage: 20 MG DAILY
     Dates: start: 20160616, end: 20161031
  12. MIDODRINE HYDROCHLORIDE. [Concomitant]
     Active Substance: MIDODRINE HYDROCHLORIDE
     Indication: ORTHOSTATIC INTOLERANCE
     Dosage: 4 MG DAILY
     Dates: start: 20161101
  13. DIAZEPAM. [Concomitant]
     Active Substance: DIAZEPAM
     Indication: PRODUCT USED FOR UNKNOWN INDICATION
  14. TEGRETOL [Concomitant]
     Active Substance: CARBAMAZEPINE
     Indication: PARTIAL SEIZURES WITH SECONDARY GENERALISATION
     Dosage: 300 MG DAILY
     Route: 048
     Dates: end: 20150826
  15. POTASSIUM BROMIDE [Concomitant]
     Active Substance: POTASSIUM BROMIDE
     Dosage: 400 MG DAILY
     Route: 048
     Dates: start: 20160310, end: 20160418
  16. MYSTAN [Concomitant]
     Active Substance: CLOBAZAM
     Dosage: 5 MG, UNK
     Route: 048
     Dates: start: 20161015, end: 2016
  17. LEVETIRACETAM. [Suspect]
     Active Substance: LEVETIRACETAM
     Dosage: 1000 MG, 2X/DAY (BID)
     Route: 048
     Dates: start: 20150915, end: 20151103
  18. MYSTAN [Concomitant]
     Active Substance: CLOBAZAM
     Dosage: 5 MG DAILY
     Route: 048
     Dates: start: 20161015, end: 20161122
  19. MYSTAN [Concomitant]
     Active Substance: CLOBAZAM
     Dosage: 10 MG DAILY
     Route: 048
     Dates: start: 20161118
  20. CAFFEINE. [Concomitant]
     Active Substance: CAFFEINE
     Indication: SOMNOLENCE
     Dosage: UNK
     Dates: start: 20170808
  21. LEVETIRACETAM. [Suspect]
     Active Substance: LEVETIRACETAM
     Indication: PARTIAL SEIZURES WITH SECONDARY GENERALISATION
     Dosage: 500 MG, 2X/DAY (BID)
     Route: 048
     Dates: start: 20150901, end: 20150914
  22. FOSPHENYTOIN [Concomitant]
     Active Substance: FOSPHENYTOIN\FOSPHENYTOIN SODIUM
     Indication: PRODUCT USED FOR UNKNOWN INDICATION

REACTIONS (6)
  - Intentional overdose [Unknown]
  - Orthostatic intolerance [Not Recovered/Not Resolved]
  - Somnolence [Unknown]
  - Intentional dose omission [Unknown]
  - Epilepsy [Unknown]
  - Suicide attempt [Recovering/Resolving]

NARRATIVE: CASE EVENT DATE: 201606
